FAERS Safety Report 22385549 (Version 4)
Quarter: 2024Q2

REPORT INFORMATION
  Report Type: Spontaneous
  Country: US (occurrence: US)
  Receive Date: 20230530
  Receipt Date: 20240527
  Transmission Date: 20240716
  Serious: No
  Sender: FDA-Public Use
  Company Number: US-PFIZER INC-PV202300094087

PATIENT
  Age: 14 Year
  Sex: Female

DRUGS (2)
  1. OXBRYTA [Suspect]
     Active Substance: VOXELOTOR
     Dosage: 1500 MG, 1X/DAY
     Route: 048
     Dates: start: 202012
  2. OXBRYTA [Suspect]
     Active Substance: VOXELOTOR
     Dosage: 3 TABLETS ONCE DAILY
     Route: 048

REACTIONS (1)
  - Treatment noncompliance [Unknown]
